FAERS Safety Report 19080110 (Version 1)
Quarter: 2021Q2

REPORT INFORMATION
  Report Type: Spontaneous
  Country: JP (occurrence: JP)
  Receive Date: 20210401
  Receipt Date: 20210401
  Transmission Date: 20210717
  Serious: Yes (Other)
  Sender: FDA-Public Use
  Company Number: JP-JNJFOC-20210141571

PATIENT
  Age: 47 Year
  Sex: Male

DRUGS (15)
  1. STELARA [Suspect]
     Active Substance: USTEKINUMAB
     Indication: CROHN^S DISEASE
     Dosage: 130MG X 2
     Route: 042
     Dates: start: 20201102, end: 20201102
  2. CINAL [ASCORBIC ACID;CALCIUM PANTOTHENATE] [Concomitant]
     Indication: VITAMIN SUPPLEMENTATION
     Dosage: 200MG X 2 TABLETS
     Route: 048
     Dates: start: 20201001
  3. STELARA [Suspect]
     Active Substance: USTEKINUMAB
     Dosage: 45MG X 2
     Route: 058
     Dates: start: 2020
  4. MIYA?BM [Concomitant]
     Active Substance: CLOSTRIDIUM BUTYRICUM SPORES STRAIN M-55
     Indication: DYSBIOSIS
     Dosage: 20MG X 3
     Route: 048
     Dates: start: 20201001
  5. ADONA [CARBAZOCHROME SODIUM SULFONATE] [Concomitant]
     Active Substance: CARBAZOCHROME SODIUM SULFONATE
     Indication: HAEMOSTASIS
     Dosage: 30MG X 2 TABLETS
     Route: 048
     Dates: start: 20201001
  6. PREDONINE [Suspect]
     Active Substance: PREDNISOLONE
     Route: 048
     Dates: start: 20210228, end: 20210228
  7. PREDONINE [Suspect]
     Active Substance: PREDNISOLONE
     Route: 048
     Dates: start: 20210301, end: 20210308
  8. ISCOTIN [Concomitant]
     Active Substance: ISONIAZID
     Indication: TUBERCULOSIS
     Route: 048
     Dates: start: 20201001
  9. RIZABEN [Concomitant]
     Active Substance: TRANILAST
     Indication: CUTANEOUS SYMPTOM
     Dosage: 100MG X 3 CAPSULES
     Route: 048
     Dates: start: 20201001
  10. PROMAC D [Concomitant]
     Active Substance: POLAPREZINC
     Indication: GASTROINTESTINAL DISORDER
     Dosage: 75MG X 2 TABLETS
     Route: 048
     Dates: start: 20201001
  11. PENTASA [Concomitant]
     Active Substance: MESALAMINE
     Indication: CROHN^S DISEASE
     Route: 048
     Dates: start: 20201001
  12. ALLEGRA [Concomitant]
     Active Substance: FEXOFENADINE HYDROCHLORIDE
     Indication: CUTANEOUS SYMPTOM
     Dosage: 60MG X 2 TABLETS
     Route: 048
     Dates: start: 20201001
  13. LOXONIN [Concomitant]
     Active Substance: LOXOPROFEN SODIUM
     Indication: ANALGESIC THERAPY
     Dosage: 60MG X 3 TABLETS
     Route: 048
     Dates: start: 20201001
  14. PREDONINE [Suspect]
     Active Substance: PREDNISOLONE
     Indication: ERYTHEMA
     Route: 048
     Dates: start: 20210222, end: 20210227
  15. CHOLEBINE [Concomitant]
     Active Substance: COLESTILAN CHLORIDE
     Indication: GASTROINTESTINAL DISORDER
     Dosage: 500MG X 2?COLESTIMIDE
     Route: 048
     Dates: start: 20201001

REACTIONS (2)
  - Deep vein thrombosis [Unknown]
  - Erythema [Not Recovered/Not Resolved]

NARRATIVE: CASE EVENT DATE: 2021
